FAERS Safety Report 7786075-0 (Version None)
Quarter: 2011Q3

REPORT INFORMATION
  Report Type: 
  Country: None (occurrence: None)
  Receive Date: 20110929
  Receipt Date: 20110915
  Transmission Date: 20111222
  Serious: Yes (Hospitalization)
  Sender: FDA-Public Use
  Company Number: FR-CELGENEUS-056-21880-11091992

PATIENT
  Sex: Male
  Weight: 87 kg

DRUGS (13)
  1. BORTEZOMIB [Suspect]
     Route: 065
     Dates: start: 20110927
  2. EPREX [Concomitant]
     Route: 041
     Dates: start: 20110812, end: 20110912
  3. PHENOXYMETHYL PENICILLIN [Concomitant]
     Indication: INFECTION PROPHYLAXIS
     Route: 048
     Dates: start: 20110812
  4. REVLIMID [Suspect]
     Indication: MULTIPLE MYELOMA
     Dosage: 25 MILLIGRAM
     Route: 048
     Dates: start: 20110906, end: 20110912
  5. DEXAMETHASONE [Suspect]
     Indication: MULTIPLE MYELOMA
     Route: 065
     Dates: start: 20110906, end: 20110913
  6. INNOHEP [Concomitant]
     Indication: THROMBOSIS PROPHYLAXIS
     Route: 041
     Dates: start: 20110812
  7. VALACYCLOVIR HYDROCHLORIDE [Concomitant]
     Indication: INFECTION PROPHYLAXIS
     Route: 048
     Dates: start: 20110812
  8. REVLIMID [Suspect]
     Dosage: 25 MILLIGRAM
     Route: 048
     Dates: start: 20110927
  9. SPECIAFOLDINE [Concomitant]
     Route: 048
     Dates: start: 20110830
  10. LEXOMIL [Concomitant]
     Indication: ANXIETY
     Route: 048
     Dates: start: 20110812
  11. BORTEZOMIB [Suspect]
     Indication: MULTIPLE MYELOMA
     Route: 065
     Dates: start: 20110906, end: 20110913
  12. DEXAMETHASONE [Suspect]
     Route: 065
     Dates: start: 20110927
  13. BACTRIM [Concomitant]
     Indication: INFECTION PROPHYLAXIS
     Route: 048
     Dates: start: 20110830

REACTIONS (1)
  - ASCITES [None]
